FAERS Safety Report 7187298-4 (Version None)
Quarter: 2010Q4

REPORT INFORMATION
  Report Type: 
  Country: None (occurrence: None)
  Receive Date: 20101222
  Receipt Date: 20101210
  Transmission Date: 20110411
  Serious: Yes (Other)
  Sender: FDA-Public Use
  Company Number: IT-ELI_LILLY_AND_COMPANY-IT201012002989

PATIENT
  Age: 71 Year

DRUGS (2)
  1. GEMCITABINE HCL [Suspect]
     Indication: NON-HODGKIN'S LYMPHOMA
     Dosage: 1000 MG/M2, 100-MINUTE INFUSION
     Route: 065
  2. OXALIPLATIN [Concomitant]
     Indication: NON-HODGKIN'S LYMPHOMA
     Dosage: 100 MG/M2, 2-HOURS INFUSION
     Route: 065

REACTIONS (1)
  - PNEUMONIA [None]
